FAERS Safety Report 8517224-4 (Version None)
Quarter: 2012Q3

REPORT INFORMATION
  Report Type: 
  Country: None (occurrence: None)
  Receive Date: 20120718
  Receipt Date: 20120712
  Transmission Date: 20120928
  Serious: Yes (Hospitalization)
  Sender: FDA-Public Use
  Company Number: SE-PFIZER INC-2012167451

PATIENT
  Age: 75 Year
  Sex: Female

DRUGS (13)
  1. SPIRONOLACTONE [Suspect]
     Indication: OEDEMA DUE TO CARDIAC DISEASE
  2. ZOLPIDEM TATRATE [Concomitant]
  3. SPIRONOLACTONE [Suspect]
     Indication: CARDIAC FAILURE
     Dosage: UNK
     Dates: end: 20120507
  4. FUROSEMIDE [Concomitant]
  5. ALPRAZOLAM [Concomitant]
  6. ZOLOFT [Concomitant]
  7. MIRTAZAPINE [Concomitant]
  8. OMEPRAZOLE [Concomitant]
  9. DIOVAN [Suspect]
     Indication: OEDEMA DUE TO CARDIAC DISEASE
  10. VAGIFEM [Concomitant]
  11. DIOVAN [Suspect]
     Indication: CARDIAC FAILURE
     Dosage: UNK
     Dates: end: 20120507
  12. FLUCONAZOLE [Concomitant]
  13. UREA [Concomitant]

REACTIONS (4)
  - DIZZINESS [None]
  - BLOOD CREATININE INCREASED [None]
  - NAUSEA [None]
  - VOMITING [None]
